FAERS Safety Report 4679190-1 (Version None)
Quarter: 2005Q2

REPORT INFORMATION
  Report Type: 
  Country: None (occurrence: None)
  Receive Date: 20050526
  Receipt Date: 20050201
  Transmission Date: 20051028
  Serious: Yes (Life-Threatening, Hospitalization)
  Sender: FDA-Public Use
  Company Number: WAES 0502USA00276

PATIENT
  Sex: Male

DRUGS (1)
  1. VYTORIN [Suspect]
     Dosage: 10-40 MG/DAILY/PO
     Route: 048
     Dates: end: 20050131

REACTIONS (1)
  - RHABDOMYOLYSIS [None]
